FAERS Safety Report 6452057-4 (Version None)
Quarter: 2009Q4

REPORT INFORMATION
  Report Type: 
  Country: None (occurrence: None)
  Receive Date: 20091123
  Receipt Date: 20091110
  Transmission Date: 20100525
  Serious: Yes (Other)
  Sender: FDA-Public Use
  Company Number: B0602361A

PATIENT
  Sex: Female
  Weight: 67 kg

DRUGS (3)
  1. ALLI [Suspect]
     Dosage: 60MG PER DAY
     Route: 065
     Dates: start: 20090618
  2. TERCIAN [Concomitant]
     Dosage: 100MG PER DAY
     Route: 065
     Dates: start: 19890101
  3. PAROXETINE [Concomitant]
     Dosage: 20MG PER DAY
     Route: 065

REACTIONS (3)
  - ANAEMIA [None]
  - EPISTAXIS [None]
  - INTENTIONAL DRUG MISUSE [None]
